FAERS Safety Report 4502236-8 (Version None)
Quarter: 2004Q4

REPORT INFORMATION
  Report Type: 
  Country: None (occurrence: None)
  Receive Date: 20041116
  Receipt Date: 20041105
  Transmission Date: 20050328
  Serious: Yes (Other)
  Sender: FDA-Public Use
  Company Number: PT-JNJFOC-20041102044

PATIENT
  Sex: Female
  Weight: 57 kg

DRUGS (5)
  1. SPORANOX [Suspect]
     Indication: ONYCHOMYCOSIS
     Route: 049
     Dates: start: 20041004, end: 20041010
  2. ACETOMINOPHEN [Concomitant]
     Indication: HEADACHE
     Route: 049
  3. IBUPROFEN [Concomitant]
     Indication: HEADACHE
     Route: 049
  4. NIMESULIDE [Concomitant]
     Indication: HEADACHE
     Route: 049
  5. DESLORATADINE [Concomitant]
     Route: 049

REACTIONS (3)
  - ANXIETY [None]
  - DYSPNOEA [None]
  - YAWNING [None]
